FAERS Safety Report 5024767-7 (Version None)
Quarter: 2006Q2

REPORT INFORMATION
  Report Type: 
  Country: None (occurrence: None)
  Receive Date: 20060426
  Receipt Date: 20060216
  Transmission Date: 20061013
  Serious: Yes (Other)
  Sender: FDA-Public Use
  Company Number: 2006025215

PATIENT
  Age: 76 Year
  Sex: Female
  Weight: 58.514 kg

DRUGS (4)
  1. LYRICA [Suspect]
     Indication: PAIN IN EXTREMITY
     Dosage: 75 MG (75 MG, 1 IN 1 D)
     Dates: start: 20060101
  2. LIPITOR [Concomitant]
  3. ATENOLOL [Concomitant]
  4. IBUPROFEN [Concomitant]

REACTIONS (2)
  - BALANCE DISORDER [None]
  - DIZZINESS [None]
